FAERS Safety Report 21392184 (Version 3)
Quarter: 2022Q4

REPORT INFORMATION
  Report Type: Spontaneous
  Country: FR (occurrence: FR)
  Receive Date: 20220929
  Receipt Date: 20221201
  Transmission Date: 20230113
  Serious: Yes (Other)
  Sender: FDA-Public Use
  Company Number: FR-AMERICAN REGENT INC-2022002810

PATIENT
  Age: 35 Year
  Sex: Female

DRUGS (11)
  1. FERINJECT [Suspect]
     Active Substance: FERRIC CARBOXYMALTOSE
     Indication: Product used for unknown indication
     Dosage: 1000 MILLIGRAM, SINGLE
  2. SULPROSTONE [Concomitant]
     Active Substance: SULPROSTONE
     Indication: Postpartum haemorrhage
     Dosage: UNK
     Route: 042
  3. SULPROSTONE [Concomitant]
     Active Substance: SULPROSTONE
     Indication: Procedural haemorrhage
  4. SULPROSTONE [Concomitant]
     Active Substance: SULPROSTONE
     Indication: Post procedural haemorrhage
  5. SUFENTANIL CITRATE [Concomitant]
     Active Substance: SUFENTANIL CITRATE
     Indication: Caesarean section
     Dosage: UNK
     Route: 065
  6. BUPIVACAINE [Concomitant]
     Active Substance: BUPIVACAINE
     Indication: Caesarean section
     Dosage: UNK
     Route: 065
  7. MORPHINE HYDROCHLORIDE [Concomitant]
     Active Substance: MORPHINE HYDROCHLORIDE
     Indication: Caesarean section
     Dosage: UNK
     Route: 065
  8. EPHEDRINE [Concomitant]
     Active Substance: EPHEDRINE
     Indication: Caesarean section
     Dosage: UNK
     Route: 065
  9. CEFUROXIME [Concomitant]
     Active Substance: CEFUROXIME
     Indication: Caesarean section
     Dosage: UNK
     Route: 065
  10. OXYTOCIN [Concomitant]
     Active Substance: OXYTOCIN
     Indication: Caesarean section
     Dosage: UNK
     Route: 065
  11. ROPIVACAINE [Concomitant]
     Active Substance: ROPIVACAINE
     Indication: Caesarean section
     Dosage: UNK
     Route: 065

REACTIONS (1)
  - Anaphylactic reaction [Recovered/Resolved]
